FAERS Safety Report 9136092 (Version 1)
Quarter: 2013Q1

REPORT INFORMATION
  Report Type: Spontaneous
  Country: US (occurrence: US)
  Receive Date: 20130304
  Receipt Date: 20130304
  Transmission Date: 20140127
  Serious: No
  Sender: FDA-Public Use
  Company Number: US-ABBOTT-12P-163-0936352-00

PATIENT
  Sex: Male
  Weight: 104.42 kg

DRUGS (7)
  1. ANDROGEL 1% [Suspect]
     Indication: BLOOD TESTOSTERONE DECREASED
     Dates: end: 201112
  2. ANDROGEL 1.62% [Suspect]
     Indication: BLOOD TESTOSTERONE DECREASED
     Dates: start: 201112, end: 201202
  3. ANDROGEL 1.62% [Suspect]
     Dates: start: 201202
  4. LISINOPRIL [Concomitant]
     Indication: HYPERTENSION
  5. BYSTOLIC [Concomitant]
     Indication: HYPERTENSION
  6. TOPOMAX [Concomitant]
     Indication: HEADACHE
  7. OXYCONTIN [Concomitant]
     Indication: BACK PAIN

REACTIONS (1)
  - Blood testosterone decreased [Not Recovered/Not Resolved]
